FAERS Safety Report 5389401-5 (Version None)
Quarter: 2007Q3

REPORT INFORMATION
  Report Type: 
  Country: None (occurrence: None)
  Receive Date: 20070703
  Receipt Date: 20070320
  Transmission Date: 20080115
  Serious: No
  Sender: FDA-Public Use
  Company Number: 2007PV032047

PATIENT
  Age: 43 Year
  Sex: Female
  Weight: 149.687 kg

DRUGS (2)
  1. SYMLIN [Suspect]
     Dosage: 60 MCG;BID;SC  15 MCG; SC
     Route: 058
     Dates: start: 20070201
  2. HUMALOG [Concomitant]

REACTIONS (2)
  - BLOOD GLUCOSE DECREASED [None]
  - BLOOD GLUCOSE INCREASED [None]
